FAERS Safety Report 6293236-9 (Version None)
Quarter: 2009Q3

REPORT INFORMATION
  Report Type: 
  Country: None (occurrence: None)
  Receive Date: 20090731
  Receipt Date: 20090722
  Transmission Date: 20100115
  Serious: Yes (Other)
  Sender: FDA-Public Use
  Company Number: GR-B.I. PHARMACEUTICALS,INC./RIDGEFIELD-2009-DE-05087GB

PATIENT
  Age: 71 Year
  Sex: Female

DRUGS (10)
  1. MIRAPEX [Suspect]
     Indication: PARKINSON'S DISEASE
  2. SINEMET [Concomitant]
     Indication: PARKINSON'S DISEASE
  3. COMTAN [Concomitant]
     Indication: PARKINSON'S DISEASE
  4. STALEVO 100 [Concomitant]
     Indication: PARKINSON'S DISEASE
  5. SYMMETREL [Concomitant]
     Indication: PARKINSON'S DISEASE
  6. LADOSE [Concomitant]
     Indication: PARKINSON'S DISEASE
     Dosage: 1X1
  7. SEROQUEL [Concomitant]
     Indication: PARKINSON'S DISEASE
     Dosage: 1/2-1/2-1
  8. MOVATEC [Concomitant]
     Indication: PARKINSON'S DISEASE
  9. RIVOTRIL [Concomitant]
     Indication: PARKINSON'S DISEASE
  10. MADOPAR [Concomitant]
     Indication: PARKINSON'S DISEASE
     Dosage: 1/2

REACTIONS (1)
  - HIP FRACTURE [None]
